FAERS Safety Report 5300661-9 (Version None)
Quarter: 2007Q2

REPORT INFORMATION
  Report Type: 
  Country: None (occurrence: None)
  Receive Date: 20070418
  Receipt Date: 20070409
  Transmission Date: 20071010
  Serious: No
  Sender: FDA-Public Use
  Company Number: US-JNJFOC-20061101411

PATIENT
  Sex: Female
  Weight: 49.9 kg

DRUGS (3)
  1. DURAGESIC-100 [Suspect]
     Indication: PAIN
     Route: 062
  2. TEGRETOL [Concomitant]
     Indication: CONVULSION
     Route: 048
  3. BACLOFEN [Concomitant]
     Route: 048

REACTIONS (4)
  - DRUG TOXICITY [None]
  - FALL [None]
  - HYPOAESTHESIA [None]
  - SPINAL COLUMN STENOSIS [None]
